FAERS Safety Report 21370102 (Version 1)
Quarter: 2022Q3

REPORT INFORMATION
  Report Type: Spontaneous
  Country: US (occurrence: US)
  Receive Date: 20220923
  Receipt Date: 20220923
  Transmission Date: 20221027
  Serious: No
  Sender: FDA-Public Use
  Company Number: US-LANNETT COMPANY, INC.-US-2022LAN000021

PATIENT

DRUGS (1)
  1. HYDROXYZINE HYDROCHLORIDE [Suspect]
     Active Substance: HYDROXYZINE HYDROCHLORIDE
     Indication: Pruritus
     Dosage: 12.5 ML, 2.5 TEASPOON, 4 TIMES A DAY AS NEEDED
     Route: 048

REACTIONS (4)
  - Somnolence [Unknown]
  - Liquid product physical issue [Unknown]
  - Product taste abnormal [Unknown]
  - Product use complaint [Unknown]
